FAERS Safety Report 20584176 (Version 1)
Quarter: 2022Q1

REPORT INFORMATION
  Report Type: Other
  Country: US (occurrence: None)
  Receive Date: 20220311
  Receipt Date: 20220311
  Transmission Date: 20220424
  Serious: Yes (Death)
  Sender: FDA-Public Use
  Company Number: US-ROCHE-3013309

PATIENT
  Sex: Male

DRUGS (1)
  1. OCREVUS [Suspect]
     Active Substance: OCRELIZUMAB
     Indication: Relapsing-remitting multiple sclerosis
     Dosage: 06/AUG/2021 AND 08/AUG//2022?THAN 600 MG EVERY 6 MONTHS
     Route: 042
     Dates: start: 20210713

REACTIONS (1)
  - Death [Fatal]
